FAERS Safety Report 13211803 (Version 2)
Quarter: 2017Q1

REPORT INFORMATION
  Report Type: Spontaneous
  Country: US (occurrence: US)
  Receive Date: 20170210
  Receipt Date: 20170321
  Transmission Date: 20170428
  Serious: Yes (Other)
  Sender: FDA-Public Use
  Company Number: US-BAYER-2017-020918

PATIENT
  Age: 30 Year
  Sex: Male
  Weight: 79.37 kg

DRUGS (4)
  1. BENICAR [Concomitant]
     Active Substance: OLMESARTAN MEDOXOMIL
  2. KOGENATE FS [Suspect]
     Active Substance: ANTIHEMOPHILIC FACTOR, HUMAN RECOMBINANT
     Indication: FACTOR VIII DEFICIENCY
     Dosage: (INFUSED DAIY FOR 5 DAYS; TARGET JOINT: BOTH ELBOWS)
  3. KOGENATE FS [Suspect]
     Active Substance: ANTIHEMOPHILIC FACTOR, HUMAN RECOMBINANT
     Indication: FACTOR VIII DEFICIENCY
     Dosage: 2000 U, QOD, INFUSE ~2000 UNITS (+/-10%) IVEVERY OTHER DAY + DAILY AS NEEDED
     Route: 042
     Dates: start: 201105
  4. NEXIUM [Concomitant]
     Active Substance: ESOMEPRAZOLE MAGNESIUM

REACTIONS (4)
  - Intra-abdominal haemorrhage [Unknown]
  - Abdominal pain [Unknown]
  - Haemorrhage [Unknown]
  - Limb injury [None]

NARRATIVE: CASE EVENT DATE: 201701
